FAERS Safety Report 12584959 (Version 5)
Quarter: 2018Q1

REPORT INFORMATION
  Report Type: Report from Study
  Country: US (occurrence: US)
  Receive Date: 20160722
  Receipt Date: 20180125
  Transmission Date: 20180508
  Serious: No
  Sender: FDA-Public Use
  Company Number: US-AMGEN-USASL2016068400

PATIENT
  Age: 61 Year
  Sex: Male

DRUGS (1)
  1. REPATHA [Suspect]
     Active Substance: EVOLOCUMAB
     Indication: HYPERLIPIDAEMIA
     Dosage: 140 MG, Q2WK
     Route: 065
     Dates: end: 201604

REACTIONS (6)
  - Contusion [Recovered/Resolved]
  - Pain in extremity [Unknown]
  - Drug hypersensitivity [Unknown]
  - Back pain [Recovered/Resolved]
  - Injection site pain [Unknown]
  - Bone pain [Recovered/Resolved]
